FAERS Safety Report 4433469-7 (Version None)
Quarter: 2004Q3

REPORT INFORMATION
  Report Type: 
  Country: None (occurrence: None)
  Receive Date: 20040825
  Receipt Date: 20040825
  Transmission Date: 20050211
  Serious: Yes (Hospitalization)
  Sender: FDA-Public Use
  Company Number: None

PATIENT
  Sex: Male
  Weight: 102 kg

DRUGS (16)
  1. DIVALPROEX SODIUM [Suspect]
     Indication: AFFECTIVE DISORDER
     Dosage: 1000 MG BID ORAL
     Route: 048
     Dates: start: 20040803, end: 20040809
  2. DIVALPROEX SODIUM [Suspect]
     Indication: BIPOLAR DISORDER
     Dosage: 1000 MG BID ORAL
     Route: 048
     Dates: start: 20040803, end: 20040809
  3. VICODIN [Concomitant]
  4. NASALIDE [Concomitant]
  5. COMBIVENT [Concomitant]
  6. DOCUSATE [Concomitant]
  7. SYNTHROID [Concomitant]
  8. MAGNESIUM GLUCONATE W/ CALCIUM [Concomitant]
  9. OMEGA-3 [Concomitant]
  10. PIROXICAM [Concomitant]
  11. PRAZOSIN HCL [Concomitant]
  12. ZANTAC [Concomitant]
  13. RISPERDAL [Concomitant]
  14. SENNOSIDES [Concomitant]
  15. ZOCOR [Concomitant]
  16. TRAZODONE [Concomitant]

REACTIONS (1)
  - HYPERAMMONAEMIA [None]
